FAERS Safety Report 13848006 (Version 1)
Quarter: 2017Q3

REPORT INFORMATION
  Report Type: Spontaneous
  Country: US (occurrence: US)
  Receive Date: 20170808
  Receipt Date: 20170808
  Transmission Date: 20171127
  Serious: Yes (Hospitalization, Other)
  Sender: FDA-Public Use
  Company Number: None

PATIENT
  Age: 28 Year
  Sex: Female
  Weight: 86.85 kg

DRUGS (6)
  1. DEXILANT [Concomitant]
     Active Substance: DEXLANSOPRAZOLE
  2. METFORMIN [Concomitant]
     Active Substance: METFORMIN HYDROCHLORIDE
  3. DEPO-ESTRADIOL [Suspect]
     Active Substance: ESTRADIOL CYPIONATE
  4. LIALDA [Concomitant]
     Active Substance: MESALAMINE
  5. NADOLOL. [Concomitant]
     Active Substance: NADOLOL
  6. PREDNISONE. [Concomitant]
     Active Substance: PREDNISONE

REACTIONS (4)
  - Ovarian mass [None]
  - Focal nodular hyperplasia [None]
  - Hepatic mass [None]
  - Incorrect dose administered [None]

NARRATIVE: CASE EVENT DATE: 20160512
